FAERS Safety Report 22099172 (Version 2)
Quarter: 2023Q1

REPORT INFORMATION
  Report Type: Report from Study
  Country: US (occurrence: US)
  Receive Date: 20230315
  Receipt Date: 20230324
  Transmission Date: 20230417
  Serious: Yes (Hospitalization, Other)
  Sender: FDA-Public Use
  Company Number: US-GILEAD-2023-0619839

PATIENT
  Age: 37 Year
  Sex: Female

DRUGS (9)
  1. AZTREONAM LYSINE [Suspect]
     Active Substance: AZTREONAM LYSINE
     Indication: Cystic fibrosis
     Dosage: 75 MG INHALED DAILY
     Route: 055
     Dates: start: 202007
  2. AZTREONAM LYSINE [Suspect]
     Active Substance: AZTREONAM LYSINE
     Indication: Infective pulmonary exacerbation of cystic fibrosis
     Dosage: 75 MG INHALED 3 TIMES A DAY FOR 28 DAYS ON AND 28 DAYS OFF
     Route: 055
     Dates: start: 202007
  3. AZTREONAM LYSINE [Suspect]
     Active Substance: AZTREONAM LYSINE
     Indication: Bacterial disease carrier
  4. TOBRAMYCIN SULFATE [Concomitant]
     Active Substance: TOBRAMYCIN SULFATE
     Indication: Cystic fibrosis
     Dosage: 300 MG, BID300 MG INHALED TWICE DAILY
     Route: 055
     Dates: start: 201607
  5. TOBRAMYCIN SULFATE [Concomitant]
     Active Substance: TOBRAMYCIN SULFATE
     Indication: Infective pulmonary exacerbation of cystic fibrosis
     Dosage: 300MG INHALED TWICE DAILY FOR 28 DAYS ON , THEN 28 DAYS OFF
     Route: 055
     Dates: start: 202003
  6. TOBRAMYCIN SULFATE [Concomitant]
     Active Substance: TOBRAMYCIN SULFATE
     Indication: Bacterial disease carrier
  7. PULMOZYME [Concomitant]
     Active Substance: DORNASE ALFA
     Indication: Cystic fibrosis
     Dosage: 2.5 MG INHALED DAILY
     Route: 055
     Dates: start: 201607
  8. PULMOZYME [Concomitant]
     Active Substance: DORNASE ALFA
     Indication: Infective pulmonary exacerbation of cystic fibrosis
     Dosage: 1 MG, QD
     Route: 055
     Dates: start: 202012
  9. PULMOZYME [Concomitant]
     Active Substance: DORNASE ALFA
     Indication: Bacterial disease carrier

REACTIONS (1)
  - Cystic fibrosis [Not Recovered/Not Resolved]
